FAERS Safety Report 9457798 (Version 1)
Quarter: 2013Q3

REPORT INFORMATION
  Report Type: Report from Study
  Country: JP (occurrence: JP)
  Receive Date: 20130814
  Receipt Date: 20130814
  Transmission Date: 20140515
  Serious: Yes (Death, Other)
  Sender: FDA-Public Use
  Company Number: PHHY2011JP106517

PATIENT
  Age: 62 Year
  Sex: Male
  Weight: 58 kg

DRUGS (20)
  1. AFINITOR [Suspect]
     Dosage: 7.5 MG, DAILY
     Route: 048
     Dates: start: 20111116, end: 20111227
  2. AFINITOR [Suspect]
     Dosage: 7.5 MG, DAILY
     Route: 048
     Dates: start: 20120110
  3. AFINITOR [Suspect]
     Dosage: 5 MG, DAILY
     Route: 048
     Dates: end: 201210
  4. ZOMETA [Concomitant]
     Indication: METASTATIC RENAL CELL CARCINOMA
     Dosage: UNK UKN, UNK
     Dates: start: 20110914, end: 20110914
  5. OXYCONTIN [Concomitant]
     Indication: METASTATIC RENAL CELL CARCINOMA
     Dosage: 10 MG
     Route: 048
     Dates: start: 20120110
  6. OXYCONTIN [Concomitant]
     Dosage: 5 MG
     Route: 048
  7. RINDERON [Concomitant]
     Indication: PROPHYLAXIS
     Dosage: 0.5 MG
     Route: 048
     Dates: start: 20110127
  8. RINDERON [Concomitant]
     Dosage: 0.5 MG
     Route: 048
  9. RINDERON [Concomitant]
     Dosage: 1 MG
     Route: 048
  10. RINDERON [Concomitant]
     Dosage: 2 MG
     Route: 048
  11. OMEPRAL [Concomitant]
     Indication: PROPHYLAXIS
     Dosage: 20 MG
     Route: 048
     Dates: start: 20111227
  12. OMEPRAL [Concomitant]
     Indication: METASTATIC RENAL CELL CARCINOMA
     Dosage: 0.5 MG
     Route: 048
  13. OMEPRAL [Concomitant]
     Dosage: 20 MG
     Route: 048
  14. MAGMITT [Concomitant]
     Indication: METASTATIC RENAL CELL CARCINOMA
     Dosage: 1980 MG
     Route: 048
     Dates: start: 20120131, end: 20120228
  15. ALOSENN [Concomitant]
     Indication: METASTATIC RENAL CELL CARCINOMA
     Dosage: 1.0 G
     Route: 048
     Dates: start: 20120131, end: 20120228
  16. LOXONIN [Concomitant]
     Indication: METASTATIC RENAL CELL CARCINOMA
     Dosage: 180 MG
     Route: 048
     Dates: start: 20120214, end: 20120228
  17. ADOFEED [Concomitant]
     Indication: METASTATIC RENAL CELL CARCINOMA
     Dosage: UNK
     Dates: start: 20130214, end: 20130228
  18. OPALMON [Concomitant]
     Indication: METASTATIC RENAL CELL CARCINOMA
     Dosage: 15 UG
     Route: 048
     Dates: start: 20120410, end: 20120618
  19. HOCHUEKKITO                        /07973001/ [Concomitant]
     Indication: METASTATIC RENAL CELL CARCINOMA
     Dosage: 7.5 G
     Route: 048
     Dates: start: 20120619
  20. AFINITOR [Suspect]
     Indication: METASTATIC RENAL CELL CARCINOMA
     Dosage: 5 MG, DAILY
     Route: 048
     Dates: start: 20110818, end: 20111115

REACTIONS (3)
  - Malignant neoplasm progression [Fatal]
  - Metastatic renal cell carcinoma [Fatal]
  - C-reactive protein increased [Unknown]
